FAERS Safety Report 4355747-2 (Version None)
Quarter: 2004Q2

REPORT INFORMATION
  Report Type: 
  Country: None (occurrence: None)
  Receive Date: 20040510
  Receipt Date: 20040510
  Transmission Date: 20050107
  Serious: Yes (Life-Threatening, Hospitalization)
  Sender: FDA-Public Use
  Company Number: None

PATIENT
  Age: 43 Year
  Sex: Female
  Weight: 63.5036 kg

DRUGS (2)
  1. PAXIL [Suspect]
     Indication: ANXIETY
     Dosage: 60 MG DAILY
     Dates: start: 20020101
  2. PAXIL [Suspect]
     Indication: DEPRESSION
     Dosage: 60 MG DAILY
     Dates: start: 20020101

REACTIONS (10)
  - ABNORMAL BEHAVIOUR [None]
  - DIFFICULTY IN WALKING [None]
  - HALLUCINATION [None]
  - LOSS OF CONSCIOUSNESS [None]
  - LOSS OF CONTROL OF LEGS [None]
  - MEDICATION ERROR [None]
  - MEMORY IMPAIRMENT [None]
  - PSYCHOTIC DISORDER [None]
  - SPEECH DISORDER [None]
  - SUICIDAL IDEATION [None]
